FAERS Safety Report 15557134 (Version 3)
Quarter: 2019Q4

REPORT INFORMATION
  Report Type: Spontaneous
  Country: IT (occurrence: IT)
  Receive Date: 20181026
  Receipt Date: 20191122
  Transmission Date: 20200122
  Serious: Yes (Death, Other)
  Sender: FDA-Public Use
  Company Number: IT-PFIZER INC-2018434880

PATIENT
  Age: 42 Year
  Sex: Male

DRUGS (3)
  1. PENTACOL [Concomitant]
     Active Substance: MESALAMINE
     Dosage: 3200 MG, DAILY
     Route: 048
     Dates: start: 2013, end: 20180409
  2. OMEPRAZOLE. [Concomitant]
     Active Substance: OMEPRAZOLE
     Dosage: 10 MG, DAILY
     Route: 048
     Dates: start: 20151020, end: 20171213
  3. TOFACITINIB CITRATE [Suspect]
     Active Substance: TOFACITINIB CITRATE
     Indication: COLITIS ULCERATIVE
     Dosage: 10 MG, 2X/DAY
     Route: 048
     Dates: start: 20140702, end: 20161011

REACTIONS (1)
  - Colorectal cancer metastatic [Fatal]

NARRATIVE: CASE EVENT DATE: 20180713
